FAERS Safety Report 17115799 (Version 1)
Quarter: 2019Q4

REPORT INFORMATION
  Report Type: Spontaneous
  Country: ES (occurrence: ES)
  Receive Date: 20191205
  Receipt Date: 20191205
  Transmission Date: 20200122
  Serious: Yes (Other)
  Sender: FDA-Public Use
  Company Number: ES-MYLANLABS-2019M1119196

PATIENT
  Age: 60 Year
  Sex: Female

DRUGS (10)
  1. MIRTAZAPINA [Concomitant]
     Active Substance: MIRTAZAPINE
     Dosage: 15 MILLIGRAM, PM, IN THE DINNER
     Route: 048
  2. UMECLIDINIUM BROMIDE [Concomitant]
     Active Substance: UMECLIDINIUM BROMIDE
     Dosage: MORNING INHALER
     Route: 055
  3. DULOXETINA                         /01749301/ [Concomitant]
     Active Substance: DULOXETINE
     Dosage: 60 MG IN THE MORNING AND 30 MG IN THE MEAL
     Route: 048
  4. ADIRO [Concomitant]
     Active Substance: ASPIRIN
     Dosage: IN THE DINNER
     Route: 048
  5. FOSAVANCE [Concomitant]
     Active Substance: ALENDRONATE SODIUM\CHOLECALCIFEROL
     Dosage: 1 DOSAGE FORM, QW
     Route: 048
  6. CILOSTAZOL. [Suspect]
     Active Substance: CILOSTAZOL
     Indication: ARTERIAL INSUFFICIENCY
     Dosage: 100 MILLIGRAM, 12 HOURS
     Route: 048
     Dates: start: 20190415, end: 20190430
  7. TERBASMIN                          /00199201/ [Concomitant]
     Dosage: UNK UNK, PRN, 500 MICROGRAM PER
     Route: 055
  8. DELTIUS [Concomitant]
     Active Substance: CHOLECALCIFEROL
     Dosage: 25 INTERNATIONAL UNIT/KILOGRAM, MONTHLY
  9. ESOMEPRAZOL                        /01479301/ [Concomitant]
     Active Substance: ESOMEPRAZOLE
     Dosage: 20 MILLIGRAM, QD, 24 HOURS
     Route: 048
  10. VENTOLIN [Concomitant]
     Active Substance: ALBUTEROL SULFATE
     Dosage: UNK UNK, PRN
     Route: 055

REACTIONS (4)
  - Myalgia [Recovered/Resolved]
  - Malaise [Recovered/Resolved]
  - Palpitations [Recovered/Resolved]
  - Anxiety [Recovered/Resolved]

NARRATIVE: CASE EVENT DATE: 201904
